FAERS Safety Report 7486516-2 (Version None)
Quarter: 2011Q2

REPORT INFORMATION
  Report Type: 
  Country: None (occurrence: None)
  Receive Date: 20110517
  Receipt Date: 20110429
  Transmission Date: 20111010
  Serious: No
  Sender: FDA-Public Use
  Company Number: US-B.I. PHARMACEUTICALS,INC./RIDGEFIELD-2011-BP-02010BP

PATIENT
  Sex: Female

DRUGS (3)
  1. METOPROLOL SUCCINATE [Concomitant]
     Indication: HYPERTENSION
     Dosage: 12.5 MG
  2. PRADAXA [Suspect]
     Indication: ATRIAL FIBRILLATION
     Dosage: 300 MG
     Route: 048
     Dates: start: 20101101
  3. TARKA [Concomitant]
     Indication: HYPERTENSION
     Dosage: 240 MG
     Dates: start: 20010101

REACTIONS (2)
  - DYSPEPSIA [None]
  - ALOPECIA [None]
